FAERS Safety Report 19479594 (Version 1)
Quarter: 2021Q2

REPORT INFORMATION
  Report Type: Spontaneous
  Country: RO (occurrence: RO)
  Receive Date: 20210630
  Receipt Date: 20210630
  Transmission Date: 20210717
  Serious: Yes (Hospitalization)
  Sender: FDA-Public Use
  Company Number: RO-SEATTLE GENETICS-2017SGN03019

PATIENT

DRUGS (2)
  1. BRENTUXIMAB VEDOTIN [Suspect]
     Active Substance: BRENTUXIMAB VEDOTIN
     Indication: HODGKIN^S DISEASE
     Dosage: 1.8 MG/KG, Q21D
     Route: 042
  2. BRENTUXIMAB VEDOTIN [Suspect]
     Active Substance: BRENTUXIMAB VEDOTIN
     Dosage: 1.8 MG/KG, Q3WEEKS
     Route: 042

REACTIONS (10)
  - Pneumocystis jirovecii infection [Unknown]
  - Pneumonia [Unknown]
  - Skin disorder [Unknown]
  - Diabetes mellitus [Unknown]
  - Thrombocytopenia [Unknown]
  - Renal disorder [Unknown]
  - Anaemia [Unknown]
  - Liver disorder [Unknown]
  - Peripheral sensorimotor neuropathy [Unknown]
  - Neutropenia [Unknown]
